FAERS Safety Report 6162264-6 (Version None)
Quarter: 2009Q2

REPORT INFORMATION
  Report Type: 
  Country: None (occurrence: None)
  Receive Date: 20090417
  Receipt Date: 20090410
  Transmission Date: 20091009
  Serious: Yes (Hospitalization)
  Sender: FDA-Public Use
  Company Number: 191564USA

PATIENT
  Age: 88 Year
  Sex: Male

DRUGS (10)
  1. BISOPROLOL FUMARATE [Suspect]
     Dosage: ORAL
     Route: 048
  2. FLUINDIONE [Suspect]
     Dosage: 20 MG (20 MG, 1 IN 1 D), ORAL
     Route: 048
  3. GLICLAZIDE [Suspect]
     Dosage: ORAL
     Route: 048
  4. FUROSEMIDE [Suspect]
     Dosage: 40 MG (20 MG, 2 IN 1 D)
  5. ALLOPURINOL [Concomitant]
  6. FERROUS SULFATE TAB [Concomitant]
  7. SERENOA REPENS [Concomitant]
  8. PRAVASTATIN SODIUM [Concomitant]
  9. MEPRONIZINE [Concomitant]
  10. CANDESARTAN CILEXETIL [Concomitant]

REACTIONS (2)
  - LEUKOCYTOCLASTIC VASCULITIS [None]
  - VASCULAR PURPURA [None]
